FAERS Safety Report 5607351-3 (Version None)
Quarter: 2008Q1

REPORT INFORMATION
  Report Type: 
  Country: None (occurrence: None)
  Receive Date: 20080128
  Receipt Date: 20080128
  Transmission Date: 20080703
  Serious: Yes (Hospitalization)
  Sender: FDA-Public Use
  Company Number: None

PATIENT
  Age: 56 Year
  Sex: Male
  Weight: 33.1126 kg

DRUGS (12)
  1. COUMADIN [Suspect]
     Indication: CEREBROVASCULAR ACCIDENT
     Dosage: 3 MG DAILY PO
     Route: 048
  2. INDOCIN [Suspect]
     Indication: GOUT
     Dosage: 50 MG THREE TIMES DAILY PO
     Route: 048
  3. COREG [Concomitant]
  4. COLCHICINE [Concomitant]
  5. ZETIA [Concomitant]
  6. FINASTERIDE [Concomitant]
  7. LASIX [Concomitant]
  8. NEURONTIN [Concomitant]
  9. LISINOPRIL [Concomitant]
  10. MOBIC [Concomitant]
  11. OXYCONTIN [Concomitant]
  12. FLOMAX [Concomitant]

REACTIONS (4)
  - DIARRHOEA [None]
  - HAEMATEMESIS [None]
  - MELAENA [None]
  - UPPER GASTROINTESTINAL HAEMORRHAGE [None]
